FAERS Safety Report 7373105-3 (Version None)
Quarter: 2011Q1

REPORT INFORMATION
  Report Type: 
  Country: None (occurrence: None)
  Receive Date: 20110324
  Receipt Date: 20110318
  Transmission Date: 20110831
  Serious: Yes (Hospitalization)
  Sender: FDA-Public Use
  Company Number: FR-CEPHALON-2010005608

PATIENT
  Sex: Female
  Weight: 35 kg

DRUGS (6)
  1. BENDAMUSTINE HCL [Suspect]
     Indication: MULTIPLE MYELOMA
     Route: 042
     Dates: start: 20100412, end: 20100920
  2. DEXAMETHASONE [Suspect]
     Indication: MULTIPLE MYELOMA
     Route: 048
     Dates: start: 20100412, end: 20100927
  3. VELCADE [Suspect]
     Indication: MULTIPLE MYELOMA
     Route: 042
     Dates: start: 20100412, end: 20100927
  4. ZELITREX [Concomitant]
     Dates: start: 20100412
  5. NEULASTA [Concomitant]
     Dates: start: 20100101
  6. BENDAMUSTINE HCL [Suspect]
     Route: 042
     Dates: start: 20101015

REACTIONS (1)
  - BRONCHIOLITIS [None]
